FAERS Safety Report 23663450 (Version 2)
Quarter: 2024Q3

REPORT INFORMATION
  Report Type: Spontaneous
  Country: US (occurrence: US)
  Receive Date: 20240322
  Receipt Date: 20240810
  Transmission Date: 20241017
  Serious: No
  Sender: SANOFI AVENTIS
  Company Number: US-SA-2024SA079785

PATIENT
  Age: 64 Year
  Sex: Female
  Weight: 61.224 kg

DRUGS (2)
  1. DUPIXENT [Suspect]
     Active Substance: DUPILUMAB
     Indication: Dermatitis atopic
     Dosage: 300 MG, QOW
     Route: 058
  2. SKYRIZI [Suspect]
     Active Substance: RISANKIZUMAB-RZAA

REACTIONS (6)
  - Burning sensation [Unknown]
  - Headache [Not Recovered/Not Resolved]
  - Paranasal sinus discomfort [Unknown]
  - Paranasal sinus hypersecretion [Unknown]
  - Diarrhoea [Unknown]
  - Shoulder operation [Unknown]

NARRATIVE: CASE EVENT DATE: 20240625
